FAERS Safety Report 22989681 (Version 2)
Quarter: 2023Q4

REPORT INFORMATION
  Report Type: Spontaneous
  Country: AR (occurrence: AR)
  Receive Date: 20230927
  Receipt Date: 20231002
  Transmission Date: 20240110
  Serious: Yes (Death, Hospitalization)
  Sender: FDA-Public Use
  Company Number: AR-BoehringerIngelheim-2023-BI-263358

PATIENT
  Age: 57 Year
  Sex: Female
  Weight: 120 kg

DRUGS (10)
  1. JARDIANCE [Suspect]
     Active Substance: EMPAGLIFLOZIN
     Indication: Type 1 diabetes mellitus
     Dates: start: 202307
  2. ENALAPRIL [Concomitant]
     Active Substance: ENALAPRIL
     Indication: Product used for unknown indication
  3. Insulin tresiba [Concomitant]
     Indication: Product used for unknown indication
     Dates: start: 202307, end: 202308
  4. Insulin tresiba [Concomitant]
     Dates: start: 202308
  5. ASPIRIN [Concomitant]
     Active Substance: ASPIRIN
     Indication: Product used for unknown indication
  6. HYDROCHLOROTHIAZIDE\LOSARTAN POTASSIUM [Concomitant]
     Active Substance: HYDROCHLOROTHIAZIDE\LOSARTAN POTASSIUM
     Indication: Product used for unknown indication
     Dosage: 50MG/12,5 MGR
  7. aglp1 trulicity [Concomitant]
  8. DULOXETINE [Concomitant]
     Active Substance: DULOXETINE
  9. CLONAZEPAM [Concomitant]
     Active Substance: CLONAZEPAM
  10. ROSUVASTATIN [Concomitant]
     Active Substance: ROSUVASTATIN

REACTIONS (5)
  - Diabetic ketoacidosis [Fatal]
  - Cardio-respiratory arrest [Fatal]
  - Hypoglycaemia [Not Recovered/Not Resolved]
  - Weight decreased [Unknown]
  - Decreased appetite [Unknown]

NARRATIVE: CASE EVENT DATE: 20230801
